FAERS Safety Report 8027226-2 (Version None)
Quarter: 2012Q1

REPORT INFORMATION
  Report Type: 
  Country: None (occurrence: None)
  Receive Date: 20120104
  Receipt Date: 20111220
  Transmission Date: 20120608
  Serious: Yes (Other)
  Sender: FDA-Public Use
  Company Number: NL-DEXPHARM-20112130

PATIENT
  Age: 83 Year
  Sex: Male

DRUGS (1)
  1. OMEPRAZOLE [Suspect]

REACTIONS (2)
  - TUBULOINTERSTITIAL NEPHRITIS [None]
  - RENAL IMPAIRMENT [None]
